FAERS Safety Report 13922989 (Version 3)
Quarter: 2017Q3

REPORT INFORMATION
  Report Type: Spontaneous
  Country: AU (occurrence: AU)
  Receive Date: 20170830
  Receipt Date: 20170914
  Transmission Date: 20171127
  Serious: Yes (Life-Threatening, Other)
  Sender: FDA-Public Use
  Company Number: AU-MYLANLABS-2017M1053737

PATIENT
  Age: 18 Year
  Sex: Male

DRUGS (6)
  1. CLOZAPINE. [Suspect]
     Active Substance: CLOZAPINE
     Dosage: 550 MG, HS
  2. CLOZAPINE. [Suspect]
     Active Substance: CLOZAPINE
     Dosage: 12.5 MG, QD
     Dates: start: 201508
  3. CLOZAPINE. [Suspect]
     Active Substance: CLOZAPINE
     Dosage: 25 MG, QD
     Dates: start: 2015
  4. CLOZAPINE. [Suspect]
     Active Substance: CLOZAPINE
     Indication: SCHIZOPHRENIA
     Dosage: 50 MG, AM
     Dates: start: 201503
  5. CLOZAPINE. [Suspect]
     Active Substance: CLOZAPINE
     Dosage: 175 MG, PM
     Dates: start: 201503
  6. CLOZAPINE. [Suspect]
     Active Substance: CLOZAPINE
     Dosage: 150 MG, QD
     Dates: start: 2015

REACTIONS (4)
  - Myocarditis [Recovered/Resolved]
  - Left ventricular hypertrophy [Recovered/Resolved]
  - Ejection fraction decreased [Unknown]
  - Left ventricular dysfunction [Recovered/Resolved]

NARRATIVE: CASE EVENT DATE: 2015
